FAERS Safety Report 6215377-4 (Version None)
Quarter: 2009Q2

REPORT INFORMATION
  Report Type: 
  Country: None (occurrence: None)
  Receive Date: 20090604
  Receipt Date: 20090528
  Transmission Date: 20091009
  Serious: Yes (Other)
  Sender: FDA-Public Use
  Company Number: PHHY2009DE21515

PATIENT

DRUGS (1)
  1. EMSELEX EXTENDED RELEASE [Suspect]
     Route: 065

REACTIONS (1)
  - SKIN NECROSIS [None]
